FAERS Safety Report 8867056 (Version 1)
Quarter: 2012Q4

REPORT INFORMATION
  Report Type: 
  Country: US (occurrence: US)
  Receive Date: 20121025
  Receipt Date: 20121025
  Transmission Date: 20130627
  Serious: No
  Sender: FDA-Public Use
  Company Number: US-AMGEN-USASP2012014745

PATIENT
  Age: 56 Year
  Sex: Female

DRUGS (10)
  1. ENBREL [Suspect]
     Indication: PRODUCT USED FOR UNKNOWN INDICATION
     Dosage: 50 mg, qwk
     Route: 058
  2. CELEBREX [Concomitant]
     Dosage: 50 mg, UNK
  3. TOPROL [Concomitant]
     Dosage: 50 mg, UNK
  4. OMEPRAZOLE [Concomitant]
     Dosage: 20 mg, UNK
  5. LEVOTHYROXIN [Concomitant]
     Dosage: 137 mug, UNK
  6. METHOTREXATE [Concomitant]
     Dosage: 2.5 mg, UNK
  7. METOPROLOL [Concomitant]
     Dosage: 100 mg, UNK
  8. FOLIC ACID [Concomitant]
  9. AMITRIPTYLIN [Concomitant]
     Dosage: 75 mg, UNK
  10. CALCIUM [Concomitant]

REACTIONS (1)
  - Sinusitis [Unknown]
